FAERS Safety Report 19501275 (Version 2)
Quarter: 2021Q3

REPORT INFORMATION
  Report Type: Spontaneous
  Country: US (occurrence: US)
  Receive Date: 20210707
  Receipt Date: 20210722
  Transmission Date: 20211014
  Serious: Yes (Other)
  Sender: FDA-Public Use
  Company Number: US-AUROBINDO-AUR-APL-2021-028777

PATIENT
  Age: 18 Year
  Sex: Female

DRUGS (10)
  1. TACROLIMUS. [Suspect]
     Active Substance: TACROLIMUS
     Indication: HAEMOPHAGOCYTIC LYMPHOHISTIOCYTOSIS
  2. METHOTREXATE. [Suspect]
     Active Substance: METHOTREXATE
     Indication: HAEMOPHAGOCYTIC LYMPHOHISTIOCYTOSIS
  3. MYCOPHENOLATE MOFETIL. [Suspect]
     Active Substance: MYCOPHENOLATE MOFETIL
     Indication: HAEMOPHAGOCYTIC LYMPHOHISTIOCYTOSIS
  4. TACROLIMUS. [Suspect]
     Active Substance: TACROLIMUS
     Indication: STILL^S DISEASE
     Dosage: UNK
     Route: 065
  5. METHYLPREDNISOLONE. [Suspect]
     Active Substance: METHYLPREDNISOLONE
     Indication: HAEMOPHAGOCYTIC LYMPHOHISTIOCYTOSIS
  6. METHOTREXATE. [Suspect]
     Active Substance: METHOTREXATE
     Indication: STILL^S DISEASE
     Dosage: UNK
     Route: 065
  7. METHYLPREDNISOLONE. [Suspect]
     Active Substance: METHYLPREDNISOLONE
     Indication: STILL^S DISEASE
     Dosage: UNK
     Route: 065
  8. MYCOPHENOLATE MOFETIL. [Suspect]
     Active Substance: MYCOPHENOLATE MOFETIL
     Indication: STILL^S DISEASE
     Dosage: UNK
     Route: 065
  9. PREDNISONE. [Suspect]
     Active Substance: PREDNISONE
     Indication: HAEMOPHAGOCYTIC LYMPHOHISTIOCYTOSIS
  10. PREDNISONE. [Suspect]
     Active Substance: PREDNISONE
     Indication: STILL^S DISEASE
     Dosage: UNK
     Route: 065

REACTIONS (2)
  - Diffuse large B-cell lymphoma [Unknown]
  - Epstein-Barr virus infection [Unknown]
